FAERS Safety Report 6985570-1 (Version None)
Quarter: 2010Q3

REPORT INFORMATION
  Report Type: 
  Country: None (occurrence: None)
  Receive Date: 20100915
  Receipt Date: 20100913
  Transmission Date: 20110219
  Serious: Yes (Hospitalization)
  Sender: FDA-Public Use
  Company Number: FR-MERCK-1004FRA00140

PATIENT
  Age: 81 Year
  Sex: Male

DRUGS (11)
  1. JANUVIA [Suspect]
     Indication: TYPE 2 DIABETES MELLITUS
     Route: 048
     Dates: start: 20100329, end: 20100403
  2. FLUINDIONE [Concomitant]
     Route: 048
  3. AMIODARONE HYDROCHLORIDE [Concomitant]
     Route: 048
  4. ATORVASTATIN CALCIUM [Concomitant]
     Route: 048
  5. ACETAMINOPHEN AND TRAMADOL HYDROCHLORIDE [Concomitant]
     Route: 065
  6. KETOCONAZOLE [Concomitant]
     Route: 065
  7. POTASSIUM CHLORIDE [Concomitant]
     Route: 048
  8. METFORMIN [Concomitant]
     Route: 048
  9. ACEBUTOLOL HYDROCHLORIDE [Concomitant]
     Route: 048
  10. TELMISARTAN [Concomitant]
     Route: 048
  11. AMLODIPINE BESYLATE [Concomitant]
     Route: 048

REACTIONS (1)
  - VASCULAR PURPURA [None]
